FAERS Safety Report 19680778 (Version 3)
Quarter: 2021Q3

REPORT INFORMATION
  Report Type: Spontaneous
  Country: DK (occurrence: DK)
  Receive Date: 20210810
  Receipt Date: 20210826
  Transmission Date: 20211014
  Serious: Yes (Death, Other)
  Sender: FDA-Public Use
  Company Number: DK-MYLANLABS-2021M1050085

PATIENT
  Age: 71 Year
  Sex: Female

DRUGS (7)
  1. METHOTREXATE. [Suspect]
     Active Substance: METHOTREXATE
     Indication: SMALL CELL LUNG CANCER
     Dosage: UNK, CYCLIC
  2. LOMUSTINE. [Suspect]
     Active Substance: LOMUSTINE
     Indication: SMALL CELL LUNG CANCER
     Dosage: 70 MILLIGRAM/SQ. METER, CYCLE (70 MG/M2, CYCLIC (EVERY FOURTH OR SEVENTH WEEK))
     Route: 048
  3. CYCLOPHOSPHAMIDE. [Suspect]
     Active Substance: CYCLOPHOSPHAMIDE
     Indication: SMALL CELL LUNG CANCER
     Dosage: 1000 MILLIGRAM/SQ. METER, CYCLE (1000 MG/M2, CYCLIC (EVERY FOURTH OR SEVENTH WEEK))
     Route: 042
  4. VEPESID [Suspect]
     Active Substance: ETOPOSIDE
     Indication: SMALL CELL LUNG CANCER
     Dosage: UNK, CYCLIC
  5. VINCRISTINE SULFATE. [Suspect]
     Active Substance: VINCRISTINE SULFATE
     Indication: SMALL CELL LUNG CANCER
     Dosage: 1.3 MILLIGRAM/SQ. METER, CYCLE (1.3 MG/M2, CYCLIC, WEEKLY FOR FIVE WEEKS)
     Route: 042
  6. VINCRISTINE SULFATE. [Suspect]
     Active Substance: VINCRISTINE SULFATE
     Dosage: 1.3 MILLIGRAM/SQ. METER, CYCLE (1.3 MG/M2, CYCLIC (EVERY THIRD OR FOURTH WEEK))
     Route: 042
  7. DOXORUBICIN [Suspect]
     Active Substance: DOXORUBICIN
     Indication: SMALL CELL LUNG CANCER
     Dosage: UNK, CYCLIC

REACTIONS (4)
  - Cytopenia [Not Recovered/Not Resolved]
  - Infection [Fatal]
  - Myelodysplastic syndrome [Not Recovered/Not Resolved]
  - Second primary malignancy [Not Recovered/Not Resolved]
